FAERS Safety Report 7503246 (Version 2)
Quarter: 2013Q2

REPORT INFORMATION
  Report Type: Spontaneous
  Country: US (occurrence: US)
  Receive Date: 20100601
  Receipt Date: 20130429
  Transmission Date: 20140414
  Serious: Yes (Other)
  Sender: FDA-Public Use
  Company Number: US201003004912

PATIENT
  Age: 66 Year
  Sex: Female
  Weight: 104.31 kg

DRUGS (9)
  1. BYETTA PEN DISPOSABLE [Suspect]
     Indication: DIABETES MELLITUS
     Route: 058
     Dates: start: 20080229, end: 200808
  2. DEVICE [Concomitant]
  3. HYDROCHLOROTHIAZIDE [Concomitant]
  4. ASPIRIN [Concomitant]
  5. DETROL LA [Concomitant]
  6. ZOCOR [Concomitant]
  7. DIOVAN [Concomitant]
  8. GLYBURIDE [Concomitant]
  9. RESTORIL [Concomitant]

REACTIONS (1)
  - Renal failure acute [Not Recovered/Not Resolved]
